FAERS Safety Report 23417170 (Version 2)
Quarter: 2024Q1

REPORT INFORMATION
  Report Type: Spontaneous
  Country: MX (occurrence: MX)
  Receive Date: 20240118
  Receipt Date: 20240315
  Transmission Date: 20240410
  Serious: Yes (Other)
  Sender: FDA-Public Use
  Company Number: MX-Merck Healthcare KGaA-2024001979

PATIENT
  Age: 45 Year
  Sex: Female

DRUGS (1)
  1. LEVOTHYROXINE SODIUM [Suspect]
     Active Substance: LEVOTHYROXINE SODIUM
     Indication: Hypothyroidism
     Dosage: DOSE NOT CHANGED, ONGOING THERAPY
     Route: 048
     Dates: start: 20090101

REACTIONS (7)
  - Colitis [Recovered/Resolved]
  - Tongue discomfort [Unknown]
  - Tongue pruritus [Unknown]
  - Oesophageal pain [Unknown]
  - Oesophageal discomfort [Recovering/Resolving]
  - Nausea [Recovering/Resolving]
  - Product taste abnormal [Recovering/Resolving]

NARRATIVE: CASE EVENT DATE: 20240125
